FAERS Safety Report 11705539 (Version 1)
Quarter: 2015Q4

REPORT INFORMATION
  Report Type: Spontaneous
  Country: GB (occurrence: GB)
  Receive Date: 20151106
  Receipt Date: 20151106
  Transmission Date: 20160304
  Serious: Yes (Life-Threatening, Hospitalization)
  Sender: FDA-Public Use
  Company Number: GB-COL_21076_2015

PATIENT
  Age: 72 Year
  Sex: Male

DRUGS (6)
  1. FELODIPIN [Concomitant]
     Active Substance: FELODIPINE
     Dosage: NI
  2. GLICLAZIDE [Concomitant]
     Active Substance: GLICLAZIDE
     Dosage: NI
  3. LINAGLIPTIN [Concomitant]
     Active Substance: LINAGLIPTIN
     Dosage: NI
  4. CHLORHEXIDINE GLUCONATE SOLUTION [Suspect]
     Active Substance: CHLORHEXIDINE GLUCONATE
     Indication: ELECTIVE SURGERY
     Dosage: NI/NI/
     Route: 061
     Dates: start: 20150507, end: 20150508
  5. CANDESARTAN [Concomitant]
     Active Substance: CANDESARTAN
     Dosage: NI
  6. METFORMIN [Concomitant]
     Active Substance: METFORMIN HYDROCHLORIDE
     Dosage: NI

REACTIONS (1)
  - Anaphylactic reaction [Recovered/Resolved]

NARRATIVE: CASE EVENT DATE: 20150507
